FAERS Safety Report 11676466 (Version 1)
Quarter: 2015Q4

REPORT INFORMATION
  Report Type: Spontaneous
  Country: US (occurrence: US)
  Receive Date: 20151027
  Receipt Date: 20151027
  Transmission Date: 20160304
  Serious: No
  Sender: FDA-Public Use
  Company Number: US-ELI_LILLY_AND_COMPANY-US201009006550

PATIENT
  Age: 62 Year
  Sex: Male

DRUGS (1)
  1. FORTEO [Suspect]
     Active Substance: TERIPARATIDE
     Dosage: 20 UG, DAILY (1/D)
     Route: 065
     Dates: start: 201007

REACTIONS (6)
  - Decreased activity [Unknown]
  - Somnolence [Unknown]
  - Fatigue [Unknown]
  - Malaise [Unknown]
  - Heart rate increased [Unknown]
  - Headache [Unknown]
